FAERS Safety Report 7398886 (Version 6)
Quarter: 2017Q3

REPORT INFORMATION
  Report Type: Report from Study
  Country: JP (occurrence: JP)
  Receive Date: 20100525
  Receipt Date: 20170919
  Transmission Date: 20171128
  Serious: Yes (Death, Hospitalization, Other)
  Sender: FDA-Public Use
  Company Number: PHHY2010JP30957

PATIENT
  Age: 58 Year
  Sex: Female

DRUGS (6)
  1. UFT [Concomitant]
     Active Substance: TEGAFUR\URACIL
     Indication: RENAL CELL CARCINOMA
     Dosage: 300 MG, UNK
     Route: 048
     Dates: start: 20071210, end: 20080423
  2. SODIUM CHLORIDE SOLUTION [Concomitant]
     Active Substance: SODIUM CHLORIDE
     Indication: RENAL CELL CARCINOMA
     Dosage: 500 ML, UNK
     Route: 042
     Dates: start: 20100502, end: 20100508
  3. NEXAVAR [Suspect]
     Active Substance: SORAFENIB
     Dosage: 800 MG, UNK
     Route: 048
     Dates: start: 20080424, end: 20100421
  4. AFINITOR [Suspect]
     Active Substance: EVEROLIMUS
     Dosage: 5 MG, BID
     Route: 048
     Dates: start: 20100422, end: 20100502
  5. NEXAVAR [Suspect]
     Active Substance: SORAFENIB
     Indication: METASTATIC RENAL CELL CARCINOMA
     Dosage: 800 MG, UNK
     Route: 048
     Dates: start: 20080717, end: 20100422
  6. AFINITOR [Suspect]
     Active Substance: EVEROLIMUS
     Indication: METASTATIC RENAL CELL CARCINOMA
     Dosage: 10 MG, QD
     Route: 048
     Dates: start: 20100422, end: 20100502

REACTIONS (12)
  - Hyponatraemia [Recovered/Resolved]
  - Anaemia [Unknown]
  - Blood urea increased [Unknown]
  - Malignant neoplasm progression [Fatal]
  - Hepatic function abnormal [Unknown]
  - Lymphocyte count decreased [Unknown]
  - Somnolence [Recovered/Resolved]
  - Neutrophil count increased [Unknown]
  - Platelet count decreased [Unknown]
  - Neoplasm progression [Fatal]
  - Hypothyroidism [Not Recovered/Not Resolved]
  - Pneumonia [Not Recovered/Not Resolved]

NARRATIVE: CASE EVENT DATE: 20100422
